FAERS Safety Report 4316132-2 (Version None)
Quarter: 2004Q1

REPORT INFORMATION
  Report Type: 
  Country: None (occurrence: None)
  Receive Date: 20040310
  Receipt Date: 20040223
  Transmission Date: 20041129
  Serious: Yes (Other)
  Sender: FDA-Public Use
  Company Number: 2004-BP-00422BP

PATIENT
  Age: 70 Year
  Sex: Male

DRUGS (9)
  1. MICARDIS [Suspect]
     Indication: CEREBROVASCULAR ACCIDENT
     Dosage: PO
     Route: 048
     Dates: start: 20030702
  2. MICARDIS [Suspect]
     Indication: MYOCARDIAL INFARCTION
     Dosage: PO
     Route: 048
     Dates: start: 20030702
  3. MICARDIS [Suspect]
     Indication: PROPHYLAXIS
     Dosage: PO
     Route: 048
     Dates: start: 20030702
  4. RAMIPRIL [Suspect]
     Indication: CEREBROVASCULAR ACCIDENT
     Dosage: PO
     Route: 048
     Dates: start: 20030702
  5. RAMIPRIL [Suspect]
     Indication: MYOCARDIAL INFARCTION
     Dosage: PO
     Route: 048
     Dates: start: 20030702
  6. RAMIPRIL [Suspect]
     Indication: PROPHYLAXIS
     Dosage: PO
     Route: 048
     Dates: start: 20030702
  7. ASS (NR) [Concomitant]
  8. ALLOPURINOL (NR) [Concomitant]
  9. SIMVASTATIN (NR) [Concomitant]

REACTIONS (4)
  - FALL [None]
  - HAEMATOMA [None]
  - LOSS OF CONSCIOUSNESS [None]
  - SYNCOPE [None]
